FAERS Safety Report 5406821-0 (Version None)
Quarter: 2007Q3

REPORT INFORMATION
  Report Type: 
  Country: None (occurrence: None)
  Receive Date: 20070807
  Receipt Date: 20070730
  Transmission Date: 20080115
  Serious: Yes (Other)
  Sender: FDA-Public Use
  Company Number: US-ELI_LILLY_AND_COMPANY-US200707000287

PATIENT
  Age: 63 Year
  Sex: Female
  Weight: 90.702 kg

DRUGS (16)
  1. FORTEO [Suspect]
     Indication: OSTEOPOROSIS
     Dosage: 20 UG, DAILY (1/D)
     Dates: start: 20070501
  2. METHOTREXATE [Concomitant]
     Dosage: 25 MG, WEEKLY (1/W)
  3. LANTUS [Concomitant]
     Dosage: 50 U, EACH EVENING
  4. HUMALOG [Concomitant]
     Dosage: UNK, AS NEEDED
  5. PREDNISONE TAB [Concomitant]
     Dosage: 5 MG, EACH MORNING
  6. SYNTHROID [Concomitant]
     Dosage: 0.125 MG, EACH MORNING
  7. CELEBREX [Concomitant]
     Dosage: 200 MG, 2/D
  8. ZOCOR [Concomitant]
     Dosage: 80 MG, EACH EVENING
  9. PLAVIX [Concomitant]
     Dosage: 75 MG, EACH EVENING
  10. LISINOPRIL [Concomitant]
     Dosage: 50 MG, EACH EVENING
  11. LORAZEPAM [Concomitant]
     Dosage: 1 MG, AS NEEDED
  12. NEURONTIN [Concomitant]
     Dosage: 300 MG, UNK
  13. DARVOCET [Concomitant]
     Dosage: 1 D/F, AS NEEDED
  14. PRILOSEC [Concomitant]
     Dosage: 1 D/F, EACH MORNING
  15. PROTONIX [Concomitant]
     Dosage: 1 D/F, EACH EVENING
  16. FLONASE [Concomitant]
     Dosage: UNK, AS NEEDED

REACTIONS (1)
  - FEMUR FRACTURE [None]
